FAERS Safety Report 22084288 (Version 6)
Quarter: 2023Q2

REPORT INFORMATION
  Report Type: Report from Study
  Country: BE (occurrence: BE)
  Receive Date: 20230310
  Receipt Date: 20230420
  Transmission Date: 20230722
  Serious: Yes (Death, Hospitalization)
  Sender: FDA-Public Use
  Company Number: BE-JNJFOC-20230220978

PATIENT
  Age: 65 Year
  Sex: Male
  Weight: 83.2 kg

DRUGS (21)
  1. AMIVANTAMAB [Suspect]
     Active Substance: AMIVANTAMAB
     Indication: Non-small cell lung cancer metastatic
     Dosage: MOST RECENT DOSE 11-JAN-2023
     Route: 042
     Dates: start: 20220914, end: 20230111
  2. CARBOPLATIN [Concomitant]
     Active Substance: CARBOPLATIN
     Indication: Non-small cell lung cancer metastatic
     Dosage: MOST RECENT DOSE 01-DEC-2022
     Route: 042
     Dates: start: 20220914, end: 20221201
  3. PEMETREXED [Concomitant]
     Active Substance: PEMETREXED
     Indication: Non-small cell lung cancer metastatic
     Dosage: MOST RECENT DOSE 11-JAN-2023
     Route: 042
     Dates: start: 20220914, end: 20230111
  4. POLYETHYLENE GLYCOL 3350\POTASSIUM CHLORIDE\SODIUM BICARBONATE\SODIUM [Concomitant]
     Active Substance: POLYETHYLENE GLYCOL 3350\POTASSIUM CHLORIDE\SODIUM BICARBONATE\SODIUM CHLORIDE
     Indication: Constipation
     Route: 048
     Dates: start: 20191201
  5. ACETAMINOPHEN [Concomitant]
     Active Substance: ACETAMINOPHEN
     Indication: Myalgia
     Route: 048
     Dates: start: 20220914
  6. ZOLPIDEM TARTRATE [Concomitant]
     Active Substance: ZOLPIDEM TARTRATE
     Indication: Fatigue
     Route: 048
     Dates: start: 20220921
  7. LOPERAMIDE HYDROCHLORIDE [Concomitant]
     Active Substance: LOPERAMIDE HYDROCHLORIDE
     Indication: Diarrhoea
     Route: 048
     Dates: start: 20221013
  8. CETIRIZINE HYDROCHLORIDE [Concomitant]
     Active Substance: CETIRIZINE HYDROCHLORIDE
     Indication: Pruritus
     Route: 048
     Dates: start: 20221123
  9. PANTOPRAZOLE [Concomitant]
     Active Substance: PANTOPRAZOLE
     Indication: Anaemia
     Route: 048
     Dates: start: 20221123
  10. PANTOPRAZOLE [Concomitant]
     Active Substance: PANTOPRAZOLE
     Indication: Prophylaxis against gastrointestinal ulcer
     Route: 042
     Dates: start: 20230215, end: 20230223
  11. OXYCODONE HYDROCHLORIDE\OXYCODONE TEREPHTHALATE [Concomitant]
     Active Substance: OXYCODONE HYDROCHLORIDE\OXYCODONE TEREPHTHALATE
     Indication: Vasomotor rhinitis
     Route: 045
     Dates: start: 20221208
  12. DOMPERIDONE [Concomitant]
     Active Substance: DOMPERIDONE
     Indication: Nausea
     Route: 048
     Dates: start: 20221223
  13. DOMPERIDONE [Concomitant]
     Active Substance: DOMPERIDONE
     Indication: Vomiting
  14. TETRACYCLINE [Concomitant]
     Active Substance: TETRACYCLINE
     Indication: Dermatosis
     Route: 048
     Dates: start: 20221229, end: 20230131
  15. METOCLOPRAMIDE HYDROCHLORIDE [Concomitant]
     Active Substance: METOCLOPRAMIDE HYDROCHLORIDE
     Indication: Nausea
     Route: 048
     Dates: start: 20221230
  16. METOCLOPRAMIDE HYDROCHLORIDE [Concomitant]
     Active Substance: METOCLOPRAMIDE HYDROCHLORIDE
     Indication: Vomiting
  17. METRONIDAZOLE [Concomitant]
     Active Substance: METRONIDAZOLE
     Indication: Perioral dermatitis
     Route: 061
     Dates: start: 20221230
  18. SWEET ALMOND OIL [Concomitant]
     Active Substance: ALMOND OIL
     Indication: Folliculitis
     Dosage: DOSE 1 (UNIT NOT SPECIFIED)
     Route: 061
     Dates: start: 20221013
  19. CHLORHEXIDINE [Concomitant]
     Active Substance: CHLORHEXIDINE
     Indication: Dermatosis
     Route: 061
     Dates: start: 20221216
  20. CICAPLAST [Concomitant]
     Indication: Dermatosis
     Dosage: DOSE 1 (UNIT NOT SPECIFIED)
     Route: 061
     Dates: start: 20221216
  21. DIFLUCORTOLONE VALERATE [Concomitant]
     Active Substance: DIFLUCORTOLONE VALERATE
     Indication: Dermatosis
     Dosage: DOSE 1 (UNIT NOT SPECIFIED)
     Route: 061
     Dates: start: 20221223

REACTIONS (1)
  - Pneumonitis [Fatal]

NARRATIVE: CASE EVENT DATE: 20230208
